FAERS Safety Report 4912149-5 (Version None)
Quarter: 2006Q1

REPORT INFORMATION
  Report Type: 
  Country: None (occurrence: None)
  Receive Date: 20060215
  Receipt Date: 20050802
  Transmission Date: 20060701
  Serious: No
  Sender: FDA-Public Use
  Company Number: US-GLAXOSMITHKLINE-A0569024A

PATIENT
  Age: 21 Year
  Sex: Female
  Weight: 54.5 kg

DRUGS (1)
  1. VALTREX [Suspect]
     Dosage: 500MG THREE TIMES PER DAY
     Route: 048
     Dates: start: 20050729, end: 20050801

REACTIONS (1)
  - DRUG INEFFECTIVE [None]
